FAERS Safety Report 11603509 (Version 1)
Quarter: 2015Q4

REPORT INFORMATION
  Report Type: Not Available
  Country: FR (occurrence: FR)
  Receive Date: 20151007
  Receipt Date: 20151007
  Transmission Date: 20160304
  Serious: Yes (Hospitalization)
  Sender: FDA-Public Use
  Company Number: FR-BEH-2015054385

PATIENT
  Age: 52 Year
  Sex: Female

DRUGS (3)
  1. PRIVIGEN [Suspect]
     Active Substance: HUMAN IMMUNOGLOBULIN G
     Indication: PRODUCT USED FOR UNKNOWN INDICATION
     Dosage: IMMUNOGLOBULIN FOR ABOUT 18 MONTHS, LAST COURSE RECEIVED ABOUT A MONTH AGO,LOT NO. NOT YET AVAILABLE
     Dates: start: 2014
  2. METOJECT [Suspect]
     Active Substance: METHOTREXATE SODIUM
     Indication: NECROTISING MYOSITIS
  3. CORTICOSTEROIDS [Concomitant]
     Active Substance: CORTICOSTEROID NOS
     Indication: NECROTISING MYOSITIS

REACTIONS (6)
  - Ischaemic stroke [Recovering/Resolving]
  - Paraesthesia [Not Recovered/Not Resolved]
  - Monoplegia [Recovered/Resolved]
  - Sensory disturbance [Recovering/Resolving]
  - Central nervous system lesion [Unknown]
  - Transient ischaemic attack [Recovering/Resolving]

NARRATIVE: CASE EVENT DATE: 20150901
